FAERS Safety Report 7810893-3 (Version None)
Quarter: 2011Q4

REPORT INFORMATION
  Report Type: 
  Country: None (occurrence: None)
  Receive Date: 20111013
  Receipt Date: 20111004
  Transmission Date: 20120403
  Serious: Yes (Death)
  Sender: FDA-Public Use
  Company Number: FR-JNJFOC-20111003387

PATIENT

DRUGS (11)
  1. VINCRISTINE [Suspect]
     Indication: ACUTE LYMPHOCYTIC LEUKAEMIA
     Dosage: ADMINISTERED OVER 5 MINS ON DAY 1 AND 29
     Route: 042
  2. CYCLOPHOSPHAMIDE [Suspect]
     Indication: ACUTE LYMPHOCYTIC LEUKAEMIA
     Route: 065
  3. HYDROCORTISONE [Concomitant]
     Route: 065
  4. VINCRISTINE [Suspect]
     Dosage: DAY 1-4 CONTINOUS INFUSION (CI)
     Route: 042
  5. DEXAMETHASONE [Suspect]
     Indication: ACUTE LYMPHOCYTIC LEUKAEMIA
     Route: 048
  6. DEXAMETHASONE [Suspect]
     Route: 048
  7. DOXORUBICIN HCL [Suspect]
     Indication: ACUTE LYMPHOCYTIC LEUKAEMIA
     Route: 042
  8. DOXORUBICIN HCL [Suspect]
     Route: 042
  9. CYCLOPHOSPHAMIDE [Suspect]
     Route: 065
  10. PREDNISONE [Concomitant]
     Route: 048
  11. METHOTREXATE [Concomitant]
     Route: 037

REACTIONS (1)
  - SYSTEMIC CANDIDA [None]
